FAERS Safety Report 8565419-6 (Version None)
Quarter: 2012Q3

REPORT INFORMATION
  Report Type: 
  Country: None (occurrence: None)
  Receive Date: 20120803
  Receipt Date: 20120727
  Transmission Date: 20120928
  Serious: Yes (Other)
  Sender: FDA-Public Use
  Company Number: JP-PFIZER INC-2012172950

PATIENT
  Age: 81 Year
  Sex: Female

DRUGS (2)
  1. WARFARIN [Concomitant]
     Dosage: UNK
  2. LYRICA [Suspect]
     Dosage: UNK
     Route: 048

REACTIONS (1)
  - HAEMORRHAGE [None]
